FAERS Safety Report 18837726 (Version 2)
Quarter: 2021Q1

REPORT INFORMATION
  Report Type: Report from Study
  Country: BR (occurrence: BR)
  Receive Date: 20210203
  Receipt Date: 20210208
  Transmission Date: 20210419
  Serious: Yes (Other)
  Sender: FDA-Public Use
  Company Number: NVSC2021BR006335

PATIENT
  Sex: Male

DRUGS (1)
  1. COSENTYX [Suspect]
     Active Substance: SECUKINUMAB
     Indication: PSORIATIC ARTHROPATHY
     Dosage: UNK
     Route: 065
     Dates: start: 20190716

REACTIONS (10)
  - Blood pressure decreased [Recovering/Resolving]
  - Arthralgia [Recovering/Resolving]
  - Joint range of motion decreased [Recovering/Resolving]
  - Arthritis [Unknown]
  - Blood pressure abnormal [Recovering/Resolving]
  - Hypertension [Recovering/Resolving]
  - Screaming [Not Recovered/Not Resolved]
  - Joint swelling [Recovering/Resolving]
  - Arthritis infective [Recovering/Resolving]
  - Tendonitis [Not Recovered/Not Resolved]
